FAERS Safety Report 8193238 (Version 6)
Quarter: 2013Q2

REPORT INFORMATION
  Report Type: Spontaneous
  Country: FR (occurrence: FR)
  Receive Date: 20111021
  Receipt Date: 20130604
  Transmission Date: 20140414
  Serious: Yes (Hospitalization)
  Sender: FDA-Public Use
  Company Number: FR-PFIZER INC-2011245661

PATIENT
  Age: 61 Year
  Sex: Female

DRUGS (6)
  1. TRIFLUCAN [Suspect]
     Dosage: 2 MG/ML
     Route: 041
     Dates: start: 20110718, end: 20110729
  2. VANCOMYCIN HCL [Suspect]
     Dosage: UNK
     Route: 041
     Dates: start: 20110703, end: 20110729
  3. CLAFORAN [Suspect]
     Dosage: UNK
     Route: 041
     Dates: start: 20110703, end: 20110729
  4. INEXIUM [Suspect]
     Dosage: UNK
     Route: 041
     Dates: start: 20110703, end: 20110808
  5. CIFLOX [Suspect]
     Dosage: UNK
     Route: 042
     Dates: start: 20110718, end: 20110729
  6. HEXABRIX [Suspect]
     Dosage: 1 DF, SINGLE
     Route: 042
     Dates: start: 20110713, end: 20110713

REACTIONS (1)
  - Drug reaction with eosinophilia and systemic symptoms [Recovered/Resolved]
